FAERS Safety Report 10410375 (Version 2)
Quarter: 2014Q3

REPORT INFORMATION
  Report Type: Spontaneous
  Country: US (occurrence: US)
  Receive Date: 20140826
  Receipt Date: 20140926
  Transmission Date: 20150326
  Serious: Yes (Other)
  Sender: FDA-Public Use
  Company Number: US-PFIZER INC-2014232759

PATIENT
  Age: 49 Year
  Sex: Female
  Weight: 86.17 kg

DRUGS (3)
  1. PREMARIN [Suspect]
     Active Substance: ESTROGENS, CONJUGATED
     Indication: HORMONE REPLACEMENT THERAPY
     Dosage: 1.25 MG, 1X/DAY
     Route: 048
     Dates: start: 1983
  2. SYNTHROID [Concomitant]
     Active Substance: LEVOTHYROXINE SODIUM
     Indication: HYPERTHYROIDISM
     Dosage: 112 UG, 1X/DAY
  3. MONOPRIL [Concomitant]
     Active Substance: FOSINOPRIL SODIUM
     Indication: HYPERTENSION
     Dosage: 10 MG, 1X/DAY

REACTIONS (4)
  - Road traffic accident [Unknown]
  - Intervertebral disc protrusion [Unknown]
  - Skin disorder [Unknown]
  - Injury [Unknown]

NARRATIVE: CASE EVENT DATE: 2002
